FAERS Safety Report 8440436-5 (Version None)
Quarter: 2012Q2

REPORT INFORMATION
  Report Type: 
  Country: None (occurrence: None)
  Receive Date: 20120615
  Receipt Date: 20120607
  Transmission Date: 20120825
  Serious: Yes (Hospitalization)
  Sender: FDA-Public Use
  Company Number: US-GLAXOSMITHKLINE-A0840562A

PATIENT
  Age: 70 Year
  Sex: Male
  Weight: 163.6 kg

DRUGS (5)
  1. EFFEXOR [Concomitant]
  2. PAROXETINE [Concomitant]
  3. ZOCOR [Concomitant]
  4. AVANDIA [Suspect]
     Indication: DIABETES MELLITUS
     Dosage: 8MG PER DAY
     Route: 048
     Dates: start: 20040601, end: 20070101
  5. COZAAR [Concomitant]

REACTIONS (4)
  - CAROTID ARTERY STENOSIS [None]
  - BRAIN STEM INFARCTION [None]
  - CEREBROVASCULAR ACCIDENT [None]
  - BACK PAIN [None]
